FAERS Safety Report 9919779 (Version 5)
Quarter: 2019Q1

REPORT INFORMATION
  Report Type: Spontaneous
  Country: US (occurrence: US)
  Receive Date: 20140224
  Receipt Date: 20190319
  Transmission Date: 20190418
  Serious: Yes (Other)
  Sender: FDA-Public Use
  Company Number: US-PFIZER INC-2014052567

PATIENT
  Age: 6 Year
  Sex: Male
  Weight: 20.87 kg

DRUGS (10)
  1. GENOTROPIN [Suspect]
     Active Substance: SOMATROPIN
     Dosage: 1.6 MG AND 1.8 MG DAILY ALTERNATIVELY EXCEPT FOR SUNDAY
     Dates: start: 201312
  2. PREDNISONE. [Concomitant]
     Active Substance: PREDNISONE
     Dosage: UNK
  3. GENOTROPIN [Suspect]
     Active Substance: SOMATROPIN
     Dosage: 2 MG, UNK
  4. GENOTROPIN [Suspect]
     Active Substance: SOMATROPIN
     Dosage: 0.8 MG, UNK
  5. GENOTROPIN [Suspect]
     Active Substance: SOMATROPIN
     Indication: GROWTH RETARDATION
     Dosage: 1.4 MG, 6 DAYS A WEEK
     Dates: start: 20131205
  6. GENOTROPIN [Suspect]
     Active Substance: SOMATROPIN
     Dosage: 1.6 MG, 1X/DAY
     Route: 058
  7. GENOTROPIN [Suspect]
     Active Substance: SOMATROPIN
     Dosage: 1.6 MG, (1.6MG SHOT 6 DAYS A WEEK, MON-SAT)
     Dates: start: 2015
  8. BETALONE [Concomitant]
     Dosage: UNK
  9. SPIROLACTONE [Concomitant]
     Active Substance: SPIRONOLACTONE
     Dosage: UNK
  10. LABETALOL [Concomitant]
     Active Substance: LABETALOL\LABETALOL HYDROCHLORIDE
     Indication: BLOOD PRESSURE ABNORMAL
     Dosage: 40 MG, DAILY (1 PILL IN THE MORNING AND 3 PILLS AT NIGHT)

REACTIONS (5)
  - Expired product administered [Unknown]
  - Insulin-like growth factor increased [Unknown]
  - Nephrolithiasis [Unknown]
  - Injection site haemorrhage [Unknown]
  - Product use issue [Unknown]

NARRATIVE: CASE EVENT DATE: 201312
